FAERS Safety Report 18986556 (Version 1)
Quarter: 2021Q1

REPORT INFORMATION
  Report Type: Spontaneous
  Country: CL (occurrence: CL)
  Receive Date: 20210309
  Receipt Date: 20210309
  Transmission Date: 20210420
  Serious: Yes (Other)
  Sender: FDA-Public Use
  Company Number: NVSC2021CL051231

PATIENT
  Age: 60 Year
  Sex: Female

DRUGS (3)
  1. ELCAD [Concomitant]
     Indication: OSTEOPOROSIS
     Dosage: UNK, BID (ELCAD D PLUS SINCE 3 YEARS AGO)
     Route: 065
  2. ACLASTA [Suspect]
     Active Substance: ZOLEDRONIC ACID
     Indication: OSTEOPOROSIS
     Dosage: UNK UNK, UNKNOWN (THREE YEARS AGO)
     Route: 065
  3. ACLASTA [Suspect]
     Active Substance: ZOLEDRONIC ACID
     Dosage: UNK
     Route: 065
     Dates: start: 20210216

REACTIONS (8)
  - Arthralgia [Unknown]
  - Tendonitis [Unknown]
  - Hypokinesia [Unknown]
  - Bone marrow oedema [Unknown]
  - Spinal column injury [Unknown]
  - Myalgia [Unknown]
  - Back pain [Unknown]
  - Discomfort [Unknown]

NARRATIVE: CASE EVENT DATE: 202007
